FAERS Safety Report 9863731 (Version 7)
Quarter: 2014Q2

REPORT INFORMATION
  Report Type: Report from Study
  Country: JP (occurrence: JP)
  Receive Date: 20140203
  Receipt Date: 20140429
  Transmission Date: 20141212
  Serious: Yes (Death, Life-Threatening)
  Sender: FDA-Public Use
  Company Number: JP-PFIZER INC-2014006481

PATIENT
  Age: 70 Year
  Sex: Female
  Weight: 44.6 kg

DRUGS (12)
  1. REVATIO [Suspect]
     Indication: PULMONARY ARTERIAL HYPERTENSION
     Dosage: 20 MG, 1X/DAY
     Route: 048
     Dates: start: 20090326, end: 20090329
  2. REVATIO [Suspect]
     Dosage: 20 MG, 2X/DAY
     Route: 048
     Dates: start: 20090330, end: 20090405
  3. REVATIO [Suspect]
     Dosage: 20 MG, 3X/DAY
     Route: 048
     Dates: start: 20090406, end: 20090415
  4. REVATIO [Suspect]
     Dosage: 80 MG/DAY, 3X/DAY
     Route: 048
     Dates: start: 20090416
  5. ZYLORIC [Concomitant]
     Indication: HYPERURICAEMIA
     Dosage: 100 MG, 1X/DAY
     Route: 048
     Dates: start: 20081224, end: 20111029
  6. CARELOAD [Concomitant]
     Indication: PULMONARY HYPERTENSION
     Dosage: 240 UG, 2X/DAY
     Route: 048
     Dates: start: 20090128, end: 20111110
  7. VOLIBRIS [Concomitant]
     Indication: PULMONARY HYPERTENSION
     Dosage: 2.5 MG, 2X/DAY
     Route: 048
     Dates: start: 20110930, end: 20111110
  8. LASIX [Concomitant]
     Indication: OEDEMA
     Dosage: 20 MG, 2X/DAY
     Route: 048
     Dates: end: 20111110
  9. LOPEMIN [Concomitant]
     Indication: IRRITABLE BOWEL SYNDROME
     Dosage: 1 MG, 2X/DAY
     Route: 048
     Dates: start: 20090409, end: 20111110
  10. BIOFERMIN [Concomitant]
     Indication: GASTRITIS
     Dosage: 1 G, 3X/DAY
     Route: 048
     Dates: start: 20090406, end: 20111110
  11. TAKEPRON [Concomitant]
     Indication: GASTRITIS
     Dosage: 15 MG, 1X/DAY
     Route: 048
     Dates: start: 20110407, end: 20111110
  12. HALFDIGOXIN [Concomitant]
     Indication: CARDIAC FAILURE
     Dosage: UNK
     Route: 048
     Dates: end: 20110709

REACTIONS (3)
  - Pulmonary hypertension [Fatal]
  - Cardiac failure [Fatal]
  - Anaemia [Not Recovered/Not Resolved]
